FAERS Safety Report 7138295-6 (Version None)
Quarter: 2010Q4

REPORT INFORMATION
  Report Type: 
  Country: None (occurrence: None)
  Receive Date: 20101118
  Receipt Date: 20101108
  Transmission Date: 20110411
  Serious: Yes (Other)
  Sender: FDA-Public Use
  Company Number: 2010GW000844

PATIENT
  Age: 46 Year
  Sex: Female
  Weight: 115.6 kg

DRUGS (18)
  1. MAXAIR [Suspect]
     Indication: ASTHMA
     Dosage: ;BID;INH
     Route: 055
  2. MILNACIPRAN HYDROCHLORIDE (MILNACIPRAN HYDROCHLORIDE) [Suspect]
     Indication: FIBROMYALGIA
     Dosage: 200 MG;BID; 2.5 MG;QD; 12.5 MG;BID;50 MG;BID; 100 MG;BID
     Dates: start: 20100601, end: 20100601
  3. MILNACIPRAN HYDROCHLORIDE (MILNACIPRAN HYDROCHLORIDE) [Suspect]
     Indication: FIBROMYALGIA
     Dosage: 200 MG;BID; 2.5 MG;QD; 12.5 MG;BID;50 MG;BID; 100 MG;BID
     Dates: start: 20100601, end: 20100801
  4. MILNACIPRAN HYDROCHLORIDE (MILNACIPRAN HYDROCHLORIDE) [Suspect]
     Indication: FIBROMYALGIA
     Dosage: 200 MG;BID; 2.5 MG;QD; 12.5 MG;BID;50 MG;BID; 100 MG;BID
     Dates: start: 20100701, end: 20100801
  5. MILNACIPRAN HYDROCHLORIDE (MILNACIPRAN HYDROCHLORIDE) [Suspect]
     Indication: FIBROMYALGIA
     Dosage: 200 MG;BID; 2.5 MG;QD; 12.5 MG;BID;50 MG;BID; 100 MG;BID
     Dates: start: 20100801, end: 20100914
  6. ADVAIR HFA [Suspect]
     Indication: ASTHMA
     Dosage: ;BID;
  7. PULMICORT [Suspect]
     Indication: ASTHMA
     Dosage: 180 UG;BID
  8. ZILEUTON (ZILEUTON) (600 MG) [Suspect]
     Indication: ASTHMA
     Dosage: 1200 MG;TID
  9. THEOPHYLLINE [Suspect]
     Indication: ASTHMA
     Dosage: 200 MG;QAM; 400 MG;HS
  10. RHINOCORT [Suspect]
     Indication: SEASONAL ALLERGY
     Dosage: 32 UG;QD
  11. MEDROL [Suspect]
     Indication: SINUSITIS
  12. XYZAL [Concomitant]
  13. RELPAX [Concomitant]
  14. NEXIUM [Concomitant]
  15. TOPAMAX [Concomitant]
  16. B12 /00056201/ [Concomitant]
  17. PERCOCET [Concomitant]
  18. MULTI-VITAMINS [Concomitant]

REACTIONS (4)
  - BLOOD PRESSURE INCREASED [None]
  - CATARACT [None]
  - OVERDOSE [None]
  - SINUSITIS [None]
